FAERS Safety Report 8445860-2 (Version None)
Quarter: 2012Q2

REPORT INFORMATION
  Report Type: 
  Country: None (occurrence: None)
  Receive Date: 20120618
  Receipt Date: 20120605
  Transmission Date: 20120825
  Serious: No
  Sender: FDA-Public Use
  Company Number: US-ASTRAZENECA-2012SE37682

PATIENT
  Age: 55 Year
  Sex: Female
  Weight: 95.3 kg

DRUGS (4)
  1. CRESTOR [Suspect]
     Indication: BLOOD CHOLESTEROL INCREASED
     Route: 048
     Dates: start: 20120307
  2. METOPROLOL SUCCINATE [Concomitant]
     Indication: HEART RATE
  3. PRILOSEC OTC [Concomitant]
     Indication: GASTROOESOPHAGEAL REFLUX DISEASE
  4. LISINOPRIL [Concomitant]
     Indication: HYPERTENSION

REACTIONS (3)
  - HYPOAESTHESIA [None]
  - HAEMATOCHEZIA [None]
  - CHANGE OF BOWEL HABIT [None]
